FAERS Safety Report 8909455 (Version 3)
Quarter: 2013Q1

REPORT INFORMATION
  Report Type: Report from Study
  Country: US (occurrence: US)
  Receive Date: 20121115
  Receipt Date: 20130115
  Transmission Date: 20140127
  Serious: No
  Sender: FDA-Public Use
  Company Number: US-VERTEX PHARMACEUTICAL INC.-2012-024427

PATIENT
  Age: 45 Year
  Sex: Female

DRUGS (3)
  1. VX-950 (TELAPREVIR) [Suspect]
     Indication: HEPATITIS C
     Dosage: UNK
     Route: 048
     Dates: start: 20121029
  2. PEGASYS [Suspect]
     Indication: HEPATITIS C
     Dosage: 180 ?G, UNK
     Route: 058
     Dates: start: 20120821
  3. RIBAPAK [Suspect]
     Indication: HEPATITIS C
     Dosage: 1000 MG, UNK
     Dates: start: 20120821

REACTIONS (11)
  - Migraine [Recovered/Resolved]
  - Amnesia [Unknown]
  - Blood iron decreased [Unknown]
  - Influenza like illness [Unknown]
  - Insomnia [Unknown]
  - Headache [Unknown]
  - Decreased appetite [Unknown]
  - Hot flush [Unknown]
  - Fatigue [Unknown]
  - Diarrhoea [Unknown]
  - Nausea [Unknown]
